FAERS Safety Report 8379760-3 (Version None)
Quarter: 2012Q2

REPORT INFORMATION
  Report Type: 
  Country: None (occurrence: None)
  Receive Date: 20120523
  Receipt Date: 20120511
  Transmission Date: 20120825
  Serious: Yes (Death, Other)
  Sender: FDA-Public Use
  Company Number: NL-CELGENEUS-114-21880-12041857

PATIENT
  Sex: Female
  Weight: 62 kg

DRUGS (6)
  1. REVLIMID [Suspect]
     Route: 048
     Dates: start: 20101119
  2. FENTANYL-100 [Concomitant]
     Indication: ABDOMINAL PAIN
  3. MEBEVERINE [Concomitant]
     Route: 048
     Dates: start: 20111221, end: 20120307
  4. REVLIMID [Suspect]
     Dosage: 5 MILLIGRAM
     Route: 048
     Dates: start: 20120210, end: 20120302
  5. FENTANYL-100 [Concomitant]
     Indication: BACK PAIN
     Route: 065
     Dates: start: 20090812, end: 20120307
  6. PANTOPRAZOLE [Concomitant]
     Route: 048
     Dates: start: 20080408, end: 20120307

REACTIONS (1)
  - GASTROINTESTINAL CANCER METASTATIC [None]
